FAERS Safety Report 7757762-5 (Version None)
Quarter: 2011Q3

REPORT INFORMATION
  Report Type: 
  Country: None (occurrence: None)
  Receive Date: 20110918
  Receipt Date: 20110908
  Transmission Date: 20111222
  Serious: Yes (Other)
  Sender: FDA-Public Use
  Company Number: HU-ASTRAZENECA-2011SE54634

PATIENT
  Age: 37 Year
  Sex: Female

DRUGS (7)
  1. QUETIAPINE [Suspect]
     Indication: SCHIZOPHRENIA
     Route: 048
  2. FLUPENTHIXOL [Concomitant]
     Indication: SCHIZOPHRENIA
     Route: 030
  3. FLUPENTHIXOL [Concomitant]
     Route: 030
  4. QUETIAPINE [Suspect]
     Route: 048
  5. PROCYCLIDINE HYDROCHLORIDE 2MG TAB [Concomitant]
     Route: 048
  6. CLONAZEPAM [Concomitant]
     Route: 048
  7. BUPROPION HCL [Concomitant]
     Route: 048

REACTIONS (1)
  - SCHIZOPHRENIA [None]
